FAERS Safety Report 6297084-5 (Version None)
Quarter: 2009Q3

REPORT INFORMATION
  Report Type: 
  Country: None (occurrence: None)
  Receive Date: 20090804
  Receipt Date: 20090729
  Transmission Date: 20100115
  Serious: Yes (Other)
  Sender: FDA-Public Use
  Company Number: ES-MERCK-0907ESP00033

PATIENT
  Age: 82 Year
  Sex: Female

DRUGS (5)
  1. HYZAAR [Suspect]
     Indication: HYPERTENSION
     Route: 048
     Dates: start: 20080101
  2. PANTOPRAZOLE SODIUM [Suspect]
     Indication: DYSPEPSIA
     Route: 048
     Dates: start: 20080401
  3. RISEDRONATE SODIUM [Suspect]
     Indication: BACK PAIN
     Route: 048
     Dates: start: 20080401
  4. CELECOXIB [Suspect]
     Indication: BACK PAIN
     Route: 048
     Dates: start: 20080401
  5. ATORVASTATIN CALCIUM [Suspect]
     Route: 048
     Dates: start: 20080201

REACTIONS (2)
  - CEREBRAL INFARCTION [None]
  - TRANSIENT ISCHAEMIC ATTACK [None]
